FAERS Safety Report 7914054-9 (Version None)
Quarter: 2011Q4

REPORT INFORMATION
  Report Type: 
  Country: None (occurrence: None)
  Receive Date: 20111115
  Receipt Date: 20111110
  Transmission Date: 20120403
  Serious: Yes (Other)
  Sender: FDA-Public Use
  Company Number: DE-EISAI INC-E2090-01842-SPO-DE

PATIENT
  Sex: Male

DRUGS (1)
  1. ZONEGRAN [Suspect]
     Dosage: 150 MG DAILY
     Route: 048

REACTIONS (1)
  - PSYCHOTIC DISORDER DUE TO A GENERAL MEDICAL CONDITION [None]
